FAERS Safety Report 9926867 (Version 1)
Quarter: 2014Q1

REPORT INFORMATION
  Report Type: Spontaneous
  Country: US (occurrence: US)
  Receive Date: 20140226
  Receipt Date: 20140226
  Transmission Date: 20141002
  Serious: No
  Sender: FDA-Public Use
  Company Number: US-AMGEN-USASP2013085730

PATIENT
  Age: 53 Year
  Sex: Female

DRUGS (1)
  1. ENBREL [Suspect]
     Indication: PSORIATIC ARTHROPATHY
     Dosage: UNK MG, 2 TIMES/WK
     Route: 065
     Dates: start: 20130607, end: 201310

REACTIONS (2)
  - Pain [Not Recovered/Not Resolved]
  - Nodule [Recovered/Resolved]
